FAERS Safety Report 9095165 (Version 2)
Quarter: 2013Q1

REPORT INFORMATION
  Report Type: Spontaneous
  Country: US (occurrence: None)
  Receive Date: 20130122
  Receipt Date: 20130122
  Transmission Date: 20140127
  Serious: Yes (Hospitalization)
  Sender: FDA-Public Use
  Company Number: DKLU1087929

PATIENT
  Age: 3 Year
  Sex: Female

DRUGS (2)
  1. SABRIL (FOR ORAL SOLUTION)(SABRIL)(VIGABATRIN)(500 MG, POWDER FOR ORAL SOLUTION) [Suspect]
     Indication: INFANTILE SPASMS
     Dosage: 2 IN 1 D.
     Route: 048
     Dates: start: 20100419
  2. LEVETIRACETAM (LEVETIRACETAM) [Concomitant]

REACTIONS (2)
  - Pneumonia [None]
  - Respiratory syncytial virus infection [None]
